FAERS Safety Report 14554132 (Version 2)
Quarter: 2018Q2

REPORT INFORMATION
  Report Type: Spontaneous
  Country: FR (occurrence: FR)
  Receive Date: 20180220
  Receipt Date: 20180507
  Transmission Date: 20180711
  Serious: Yes (Other)
  Sender: FDA-Public Use
  Company Number: PHHY2018FR009780

PATIENT
  Age: 59 Year
  Sex: Male

DRUGS (5)
  1. PREDNISONE. [Suspect]
     Active Substance: PREDNISONE
     Dosage: 1 MG/KG, QD
     Route: 065
     Dates: start: 201304, end: 201306
  2. PREDNISONE. [Suspect]
     Active Substance: PREDNISONE
     Indication: PYODERMA GANGRENOSUM
     Dosage: 0.5 MG/KG, QD
     Route: 065
     Dates: start: 201303, end: 201304
  3. PREDNISONE. [Suspect]
     Active Substance: PREDNISONE
     Dosage: UNK
     Route: 065
     Dates: start: 2014
  4. ETANERCEPT [Suspect]
     Active Substance: ETANERCEPT
     Indication: PYODERMA GANGRENOSUM
     Dosage: 50 MG, Q2W
     Route: 058
     Dates: start: 201307
  5. ANAKINRA [Concomitant]
     Active Substance: ANAKINRA
     Indication: PYODERMA GANGRENOSUM
     Dosage: 100 MG, UNK
     Route: 065

REACTIONS (4)
  - Drug ineffective [Unknown]
  - Gastric ulcer [Unknown]
  - Shock haemorrhagic [Unknown]
  - Product use in unapproved indication [Unknown]

NARRATIVE: CASE EVENT DATE: 2014
